FAERS Safety Report 10025957 (Version 1)
Quarter: 2014Q1

REPORT INFORMATION
  Report Type: Spontaneous
  Country: BR (occurrence: BR)
  Receive Date: 20140320
  Receipt Date: 20140320
  Transmission Date: 20141002
  Serious: Yes (Hospitalization, Other)
  Sender: FDA-Public Use
  Company Number: BR-009507513-1403BRA006089

PATIENT
  Age: 26 Year
  Sex: Female
  Weight: 68 kg

DRUGS (1)
  1. NUVARING [Suspect]
     Indication: CONTRACEPTION
     Dosage: UNK, CYCLICAL
     Route: 067
     Dates: start: 2007

REACTIONS (4)
  - Cholecystectomy [Recovered/Resolved]
  - Cholelithiasis [Recovered/Resolved]
  - Incorrect drug administration duration [Unknown]
  - Blood potassium abnormal [Unknown]
